FAERS Safety Report 6761320-9 (Version None)
Quarter: 2010Q2

REPORT INFORMATION
  Report Type: 
  Country: None (occurrence: None)
  Receive Date: 20100608
  Receipt Date: 20100514
  Transmission Date: 20101027
  Serious: Yes (Disabling, Other)
  Sender: FDA-Public Use
  Company Number: PHHY2010HU28309

PATIENT
  Age: 39 Year
  Sex: Male

DRUGS (4)
  1. CYCLOSPORINE [Suspect]
  2. METHOTREXATE [Concomitant]
  3. LEFLUNOMIDE [Concomitant]
  4. CHLOROQUINE PHOSPHATE [Concomitant]

REACTIONS (7)
  - CAPILLARY DISORDER [None]
  - FINGER DEFORMITY [None]
  - HEADACHE [None]
  - PSORIASIS [None]
  - RAYNAUD'S PHENOMENON [None]
  - SKIN EXFOLIATION [None]
  - SKIN LESION [None]
